FAERS Safety Report 8169675-8 (Version None)
Quarter: 2012Q1

REPORT INFORMATION
  Report Type: 
  Country: None (occurrence: None)
  Receive Date: 20120228
  Receipt Date: 20120223
  Transmission Date: 20120608
  Serious: Yes (Hospitalization, Other)
  Sender: FDA-Public Use
  Company Number: US-PFIZER INC-2007053384

PATIENT
  Sex: Female

DRUGS (12)
  1. HKI-272 [Suspect]
     Indication: BREAST CANCER METASTATIC
     Route: 048
     Dates: start: 20070215, end: 20070425
  2. METHADONE HCL [Suspect]
     Route: 048
  3. RITALIN [Suspect]
     Route: 048
     Dates: start: 20070413, end: 20070420
  4. MOTRIN [Concomitant]
  5. LEVAQUIN [Concomitant]
     Dates: end: 20070427
  6. ATIVAN [Concomitant]
     Dosage: 0.5MG-1.0MG EVERY 8 HOURS AS NEEDED
  7. LIDODERM [Concomitant]
  8. MAGNESIUM [Concomitant]
  9. EFFEXOR [Suspect]
     Route: 048
  10. DILAUDID [Concomitant]
     Dosage: 4MG EVERY 3 HOURS AS NEEDED.
  11. COLACE [Concomitant]
     Dates: start: 20070215
  12. NEURONTIN [Suspect]
     Dates: end: 20070427

REACTIONS (3)
  - MOVEMENT DISORDER [None]
  - URINARY TRACT INFECTION [None]
  - DYSKINESIA [None]
